FAERS Safety Report 22279413 (Version 1)
Quarter: 2023Q2

REPORT INFORMATION
  Report Type: Spontaneous
  Country: US (occurrence: None)
  Receive Date: 20230502
  Receipt Date: 20230502
  Transmission Date: 20230721
  Serious: Yes (Life-Threatening, Hospitalization)
  Sender: FDA-Public Use
  Company Number: None

PATIENT
  Age: 74 Year
  Sex: Female
  Weight: 88.5 kg

DRUGS (1)
  1. APIXABAN [Suspect]
     Active Substance: APIXABAN
     Indication: Atrial fibrillation
     Dosage: FREQUENCY : TWICE A DAY;?
     Route: 048
     Dates: start: 20211202, end: 20230426

REACTIONS (4)
  - Fall [None]
  - Cerebral haemorrhage [None]
  - Intracranial aneurysm [None]
  - Ruptured cerebral aneurysm [None]

NARRATIVE: CASE EVENT DATE: 20230426
